FAERS Safety Report 7151944-1 (Version None)
Quarter: 2010Q4

REPORT INFORMATION
  Report Type: 
  Country: None (occurrence: None)
  Receive Date: 20101210
  Receipt Date: 20101130
  Transmission Date: 20110411
  Serious: Yes (Death)
  Sender: FDA-Public Use
  Company Number: JP-AMGEN-JPNCT2010003137

PATIENT

DRUGS (12)
  1. PANITUMUMAB [Suspect]
     Indication: COLORECTAL CANCER
     Dosage: 5.6 MG/KG, Q2WK
     Route: 041
     Dates: start: 20101019
  2. OXALIPLATIN [Concomitant]
     Indication: COLORECTAL CANCER
     Dosage: 120 UNK, Q2WK
     Route: 041
     Dates: start: 20101019, end: 20101021
  3. FLUOROURACIL [Concomitant]
     Indication: COLORECTAL CANCER
     Dosage: 625 MG, UNK
     Route: 040
     Dates: start: 20101019, end: 20101021
  4. FLUOROURACIL [Concomitant]
     Route: 041
     Dates: start: 20101019, end: 20101021
  5. FLUOROURACIL [Concomitant]
  6. CALCIUM LEVOFOLINATE [Concomitant]
     Indication: COLORECTAL CANCER
     Route: 041
     Dates: start: 20101019, end: 20101021
  7. CORTICOSTEROIDS [Concomitant]
     Indication: PROPHYLAXIS
     Route: 065
  8. ANPEC [Concomitant]
     Route: 042
  9. SEROTONE [Concomitant]
     Route: 042
  10. DECADRON [Concomitant]
     Route: 042
  11. GASTER [Concomitant]
     Route: 042
  12. CHLOR-TRIMETON [Concomitant]
     Route: 042

REACTIONS (1)
  - COLORECTAL CANCER [None]
